FAERS Safety Report 20411112 (Version 1)
Quarter: 2022Q1

REPORT INFORMATION
  Report Type: Spontaneous
  Country: US (occurrence: None)
  Receive Date: 20220201
  Receipt Date: 20220201
  Transmission Date: 20220424
  Serious: Yes (Life-Threatening)
  Sender: FDA-Public Use
  Company Number: None

PATIENT
  Age: 54 Year
  Sex: Male
  Weight: 71 kg

DRUGS (2)
  1. NITRIC OXIDE [Suspect]
     Active Substance: NITRIC OXIDE
     Indication: Cardiovascular disorder
     Dosage: FREQUENCY : AS NEEDED;?
     Route: 048
     Dates: start: 20210707, end: 20210910
  2. NITRIC OXIDE [Suspect]
     Active Substance: NITRIC OXIDE
     Dosage: FREQUENCY : AS NEEDED;?
     Route: 048
     Dates: start: 20171024

REACTIONS (5)
  - Hypotension [None]
  - Pulseless electrical activity [None]
  - Hypersensitivity [None]
  - Palpitations [None]
  - Bradycardia [None]

NARRATIVE: CASE EVENT DATE: 20210727
